FAERS Safety Report 10444924 (Version 2)
Quarter: 2014Q3

REPORT INFORMATION
  Report Type: Report from Study
  Country: AU (occurrence: AU)
  Receive Date: 20140910
  Receipt Date: 20140923
  Transmission Date: 20150326
  Serious: Yes (Other)
  Sender: FDA-Public Use
  Company Number: PHHY2014AU112658

PATIENT
  Age: 70 Year
  Sex: Female

DRUGS (4)
  1. ALLEGRON [Concomitant]
     Indication: ANXIETY
  2. ACLASTA [Suspect]
     Active Substance: ZOLEDRONIC ACID
     Dosage: 5 MG, UNK
     Route: 042
  3. ALLEGRON [Concomitant]
     Indication: SLEEP DISORDER
     Dosage: UNK UKN, UNK
     Route: 048
  4. AVAPRO [Concomitant]
     Active Substance: IRBESARTAN
     Indication: BLOOD PRESSURE ABNORMAL
     Dosage: UNK UKN, UNK
     Route: 048

REACTIONS (6)
  - Herpes zoster [Unknown]
  - Breast cancer [Recovered/Resolved]
  - Bone disorder [Not Recovered/Not Resolved]
  - Pain [Recovered/Resolved]
  - Peroneal nerve palsy [Unknown]
  - Vitamin D deficiency [Unknown]

NARRATIVE: CASE EVENT DATE: 20110420
